FAERS Safety Report 5063550-3 (Version None)
Quarter: 2006Q3

REPORT INFORMATION
  Report Type: 
  Country: None (occurrence: None)
  Receive Date: 20060727
  Receipt Date: 20060302
  Transmission Date: 20061208
  Serious: Yes (Death, Hospitalization)
  Sender: FDA-Public Use
  Company Number: 2006AP01024

PATIENT
  Age: 71 Year
  Sex: Male
  Weight: 56 kg

DRUGS (13)
  1. IRESSA [Suspect]
     Indication: LUNG ADENOCARCINOMA
     Route: 048
     Dates: start: 20060201, end: 20060223
  2. RADIOTHERAPY [Suspect]
     Indication: METASTASES TO BONE
     Dosage: 26 GY TO LEFT LOWER CHEST WALL
     Dates: start: 20060105, end: 20060116
  3. PRIMPERAN TAB [Concomitant]
     Indication: NAUSEA
     Route: 048
  4. NOVAMIN [Concomitant]
     Indication: NAUSEA
     Route: 048
  5. LOXONIN [Concomitant]
     Indication: PAIN
     Route: 048
  6. PAXIL [Concomitant]
     Indication: PAIN
     Route: 048
  7. PREDONINE [Concomitant]
     Indication: PAIN
     Route: 048
  8. TAKEPRON [Concomitant]
     Indication: ABDOMINAL PAIN UPPER
     Route: 048
  9. DUROTEP [Concomitant]
     Indication: PAIN
  10. IRINOTECAN HCL [Concomitant]
     Dosage: 4 COURSES
     Dates: start: 20050622, end: 20051018
  11. CARBOPLATIN [Concomitant]
     Dosage: 4 COURSES
     Dates: start: 20050622, end: 20051018
  12. CARBOPLATIN [Concomitant]
     Dosage: 2 COURSES
     Dates: start: 20051108, end: 20051208
  13. PACLITAXEL [Concomitant]
     Dosage: 2 COURSES
     Dates: start: 20051108, end: 20051208

REACTIONS (2)
  - BRONCHOPNEUMONIA [None]
  - INTERSTITIAL LUNG DISEASE [None]
